FAERS Safety Report 8606107-7 (Version None)
Quarter: 2012Q3

REPORT INFORMATION
  Report Type: 
  Country: None (occurrence: None)
  Receive Date: 20120820
  Receipt Date: 20120112
  Transmission Date: 20120928
  Serious: Yes (Other)
  Sender: FDA-Public Use
  Company Number: US-ROCHE-1101211

PATIENT
  Sex: Female

DRUGS (2)
  1. LIDOCAINE [Concomitant]
     Dosage: BOLUS, 2 GM IN 250 CC DISTILLED WATER, 15 CC/HR
     Route: 042
  2. ACTIVASE [Suspect]
     Indication: ACUTE MYOCARDIAL INFARCTION
     Dosage: BOLUS 15 MG, INFUSION AT 100 CC/HR, DECREASED TO 35 CC/HR
     Route: 040

REACTIONS (3)
  - SINUS BRADYCARDIA [None]
  - VOMITING [None]
  - CHEST DISCOMFORT [None]
